FAERS Safety Report 4662135-8 (Version None)
Quarter: 2005Q2

REPORT INFORMATION
  Report Type: 
  Country: None (occurrence: None)
  Receive Date: 20050512
  Receipt Date: 20050426
  Transmission Date: 20051028
  Serious: Yes (Hospitalization, Other)
  Sender: FDA-Public Use
  Company Number: 200504IM000150

PATIENT
  Sex: Male

DRUGS (1)
  1. INFERGEN [Suspect]
     Indication: HEPATITIS C
     Dosage: SUBCUTANEOUS
     Route: 058
     Dates: start: 20040301, end: 20050421

REACTIONS (1)
  - CONVULSION [None]
